FAERS Safety Report 21095204 (Version 5)
Quarter: 2022Q4

REPORT INFORMATION
  Report Type: Spontaneous
  Country: US (occurrence: US)
  Receive Date: 20220718
  Receipt Date: 20221102
  Transmission Date: 20230113
  Serious: Yes (Hospitalization)
  Sender: FDA-Public Use
  Company Number: US-BRISTOL-MYERS SQUIBB COMPANY-2022-075721

PATIENT
  Age: 75 Year
  Sex: Female
  Weight: 78.01 kg

DRUGS (2)
  1. REVLIMID [Suspect]
     Active Substance: LENALIDOMIDE
     Indication: Plasma cell myeloma
     Dosage: FREQUENCY: DAYS 1-28
     Route: 048
     Dates: start: 20190812
  2. REVLIMID [Suspect]
     Active Substance: LENALIDOMIDE
     Indication: Myelodysplastic syndrome
     Dosage: DAILY
     Route: 048
     Dates: end: 20221008

REACTIONS (7)
  - Blood potassium decreased [Recovering/Resolving]
  - Platelet count decreased [Recovering/Resolving]
  - Respiratory tract infection [Recovering/Resolving]
  - Blood magnesium decreased [Recovering/Resolving]
  - Prescribed underdose [Unknown]
  - White blood cell count abnormal [Unknown]
  - Haemoglobin decreased [Unknown]

NARRATIVE: CASE EVENT DATE: 20220701
